FAERS Safety Report 21118623 (Version 3)
Quarter: 2022Q3

REPORT INFORMATION
  Report Type: Report from Study
  Country: CA (occurrence: CA)
  Receive Date: 20220722
  Receipt Date: 20220928
  Transmission Date: 20221027
  Serious: Yes (Other)
  Sender: FDA-Public Use
  Company Number: CA-BAYER-2022A081650

PATIENT
  Sex: Male

DRUGS (2)
  1. EYLEA [Suspect]
     Active Substance: AFLIBERCEPT
     Indication: Retinal vein occlusion
     Dosage: 2 MG, SOLUTION FOR INJECTION, STRENGTH: 40 MG/ML
     Dates: start: 20220418, end: 20220418
  2. EYLEA [Suspect]
     Active Substance: AFLIBERCEPT
     Dosage: TOTAL NUMBER OF INJECTIONS PRIOR TO THE EVENT: 3; LAST INJETION ON 03-JUN-2022, SOL FOR INJ
     Dates: start: 2022, end: 20220603

REACTIONS (5)
  - Blindness transient [Recovered/Resolved]
  - Angle closure glaucoma [Unknown]
  - Procedural hypertension [Unknown]
  - Anxiety [Unknown]
  - Intraocular pressure increased [Unknown]

NARRATIVE: CASE EVENT DATE: 20220101
